FAERS Safety Report 24657776 (Version 3)
Quarter: 2025Q3

REPORT INFORMATION
  Report Type: Report from Study
  Country: CA (occurrence: CA)
  Receive Date: 20241125
  Receipt Date: 20250915
  Transmission Date: 20251020
  Serious: Yes (Hospitalization, Other)
  Sender: TAKEDA
  Company Number: CA-TAKEDA-2024TUS095030

PATIENT
  Sex: Male

DRUGS (8)
  1. VEDOLIZUMAB [Suspect]
     Active Substance: VEDOLIZUMAB
     Indication: Colitis ulcerative
  2. VEDOLIZUMAB [Suspect]
     Active Substance: VEDOLIZUMAB
  3. VEDOLIZUMAB [Suspect]
     Active Substance: VEDOLIZUMAB
  4. VEDOLIZUMAB [Suspect]
     Active Substance: VEDOLIZUMAB
  5. AMOXICILLIN\CLAVULANIC ACID [Suspect]
     Active Substance: AMOXICILLIN\CLAVULANIC ACID
     Indication: Product used for unknown indication
  6. BUDESONIDE [Concomitant]
     Active Substance: BUDESONIDE
  7. ENTOCORT [Concomitant]
     Active Substance: BUDESONIDE
  8. ASACOL [Concomitant]
     Active Substance: MESALAMINE

REACTIONS (13)
  - Post procedural infection [Unknown]
  - Cholelithiasis [Recovered/Resolved]
  - Incisional hernia [Unknown]
  - Frequent bowel movements [Not Recovered/Not Resolved]
  - Diarrhoea [Unknown]
  - Abdominal discomfort [Unknown]
  - Joint stiffness [Unknown]
  - Mobility decreased [Unknown]
  - Musculoskeletal stiffness [Unknown]
  - Asthenia [Not Recovered/Not Resolved]
  - Headache [Unknown]
  - Pain in extremity [Recovered/Resolved]
  - Arthralgia [Unknown]
